FAERS Safety Report 4677806-7 (Version None)
Quarter: 2005Q2

REPORT INFORMATION
  Report Type: 
  Country: None (occurrence: None)
  Receive Date: 20050527
  Receipt Date: 20050527
  Transmission Date: 20051028
  Serious: Yes (Other)
  Sender: FDA-Public Use
  Company Number: None

PATIENT
  Sex: Female

DRUGS (1)
  1. BUPROPION HCL [Suspect]
     Dosage: ONE TAB BID
     Dates: start: 20050201

REACTIONS (2)
  - AGITATION [None]
  - FEELING JITTERY [None]
